FAERS Safety Report 6426672-8 (Version None)
Quarter: 2009Q4

REPORT INFORMATION
  Report Type: 
  Country: None (occurrence: None)
  Receive Date: 20091104
  Receipt Date: 20090219
  Transmission Date: 20100525
  Serious: Yes (Other)
  Sender: FDA-Public Use
  Company Number: US-BAYER-200824881NA

PATIENT
  Age: 51 Year
  Sex: Male
  Weight: 121 kg

DRUGS (18)
  1. MAGNEVIST [Suspect]
     Indication: NUCLEAR MAGNETIC RESONANCE IMAGING
     Dates: start: 20021030, end: 20021030
  2. OPTIMARK [Suspect]
     Indication: NUCLEAR MAGNETIC RESONANCE IMAGING
  3. OMNISCAN [Suspect]
     Indication: NUCLEAR MAGNETIC RESONANCE IMAGING
  4. MULTIHANCE [Suspect]
     Indication: NUCLEAR MAGNETIC RESONANCE IMAGING
  5. PROHANCE [Suspect]
     Indication: NUCLEAR MAGNETIC RESONANCE IMAGING
  6. UNSPECIFIED GADOLINIUM [Suspect]
     Indication: SCAN
     Dosage: NOTE DATED 06-JUN-2008:  ^ABOUT TWO YEARS AGO^ PER PATIENT
     Dates: start: 20060101, end: 20060101
  7. EPOGEN [Concomitant]
  8. IRON SUPPLEMENT [Concomitant]
  9. DIGOXIN [Concomitant]
  10. METOPROLOL [Concomitant]
  11. CYCLOSPORINE [Concomitant]
  12. PREDNISONE TAB [Concomitant]
  13. MINOXIDIL [Concomitant]
  14. COUMADIN [Concomitant]
  15. METHADONE [Concomitant]
  16. AMIODARONE [Concomitant]
  17. PROTONIX [Concomitant]
  18. RENAGEL [Concomitant]

REACTIONS (22)
  - ABASIA [None]
  - ANXIETY [None]
  - DRY SKIN [None]
  - EMOTIONAL DISTRESS [None]
  - ERYTHEMA [None]
  - INJURY [None]
  - JOINT RANGE OF MOTION DECREASED [None]
  - MOBILITY DECREASED [None]
  - MUSCLE DISORDER [None]
  - MUSCULAR WEAKNESS [None]
  - NEPHROGENIC SYSTEMIC FIBROSIS [None]
  - NEUROPATHY PERIPHERAL [None]
  - PAIN [None]
  - PRURITUS [None]
  - SKIN EXFOLIATION [None]
  - SKIN FISSURES [None]
  - SKIN HYPERPIGMENTATION [None]
  - SKIN HYPERTROPHY [None]
  - SKIN INDURATION [None]
  - SKIN IRRITATION [None]
  - SKIN NODULE [None]
  - SKIN TIGHTNESS [None]
